FAERS Safety Report 15282727 (Version 1)
Quarter: 2018Q3

REPORT INFORMATION
  Report Type: Spontaneous
  Country: GB (occurrence: GB)
  Receive Date: 20180816
  Receipt Date: 20180816
  Transmission Date: 20181010
  Serious: Yes (Disabling)
  Sender: FDA-Public Use
  Company Number: GB-TEVA-2018-GB-941520

PATIENT
  Age: 72 Year
  Sex: Female
  Weight: 50 kg

DRUGS (10)
  1. CIPROFLOXACIN. [Concomitant]
     Active Substance: CIPROFLOXACIN
     Dates: start: 20180626, end: 20180627
  2. CALCIUM CARBONATE. [Concomitant]
     Active Substance: CALCIUM CARBONATE
     Dates: start: 20171229
  3. LANSOPRAZOLE. [Concomitant]
     Active Substance: LANSOPRAZOLE
     Dates: start: 20171229
  4. PRAVASTATIN. [Suspect]
     Active Substance: PRAVASTATIN
     Route: 065
     Dates: start: 20180530, end: 20180704
  5. CHLORAMPHENICOL [Concomitant]
     Active Substance: CHLORAMPHENICOL
     Dates: start: 20180530, end: 20180606
  6. FUSIDIC ACID [Concomitant]
     Active Substance: FUSIDIC ACID
     Dates: start: 20180619, end: 20180629
  7. AMLODIPINE [Concomitant]
     Active Substance: AMLODIPINE BESYLATE
     Dates: start: 20171229
  8. CLOPIDOGREL [Concomitant]
     Active Substance: CLOPIDOGREL BISULFATE
     Dates: start: 20171229
  9. SODIUM CROMOGLICATE [Concomitant]
     Active Substance: CROMOLYN SODIUM
     Dates: start: 20180530, end: 20180606
  10. ATORVASTATIN [Concomitant]
     Active Substance: ATORVASTATIN
     Dates: start: 20171229, end: 20180427

REACTIONS (10)
  - Insomnia [Unknown]
  - Vision blurred [Unknown]
  - Nocturia [Unknown]
  - Nausea [Unknown]
  - Cough [Unknown]
  - Arthralgia [Unknown]
  - Myositis [Recovering/Resolving]
  - Fatigue [Unknown]
  - Sleep disorder [Unknown]
  - Pruritus [Unknown]

NARRATIVE: CASE EVENT DATE: 20180704
